FAERS Safety Report 5031418-4 (Version None)
Quarter: 2006Q2

REPORT INFORMATION
  Report Type: 
  Country: None (occurrence: None)
  Receive Date: 20060621
  Receipt Date: 20050906
  Transmission Date: 20061013
  Serious: Yes (Death, Hospitalization, Other)
  Sender: FDA-Public Use
  Company Number: PHRM2005FR02409

PATIENT
  Age: 63 Year
  Sex: Female
  Weight: 49 kg

DRUGS (7)
  1. ZOMETA [Suspect]
     Indication: METASTASES TO BONE
     Dosage: 4 MG, QMO
     Route: 042
     Dates: start: 20031121
  2. TAXOTERE [Concomitant]
     Indication: METASTASES TO BONE
  3. NAVELBINE [Concomitant]
     Indication: METASTASES TO BONE
     Dosage: 46 MG, QW
     Dates: start: 20031121, end: 20040701
  4. NAVELBINE [Concomitant]
     Dosage: 46 MG, QW
     Dates: start: 20041006, end: 20041201
  5. GEMZAR [Concomitant]
     Dates: start: 20040907, end: 20041001
  6. CAELYX [Concomitant]
     Indication: METASTASES TO BONE
     Dosage: 38 MG
     Dates: start: 20041216, end: 20050101
  7. XELODA [Concomitant]
     Indication: METASTASES TO BONE
     Dosage: 2 G, BID
     Route: 048
     Dates: start: 20050105, end: 20050815

REACTIONS (6)
  - BONE DISORDER [None]
  - DRY SOCKET [None]
  - MALIGNANT NEOPLASM PROGRESSION [None]
  - OSTEONECROSIS [None]
  - TOOTH EXTRACTION [None]
  - WOUND DEBRIDEMENT [None]
